FAERS Safety Report 8434104-3 (Version None)
Quarter: 2012Q2

REPORT INFORMATION
  Report Type: 
  Country: None (occurrence: None)
  Receive Date: 20120613
  Receipt Date: 20120606
  Transmission Date: 20120825
  Serious: No
  Sender: FDA-Public Use
  Company Number: US-ASTRAZENECA-2012SE38088

PATIENT
  Age: 46 Year
  Sex: Male

DRUGS (3)
  1. SEROQUEL [Suspect]
     Indication: BIPOLAR DISORDER
     Route: 048
  2. AMBIEN [Concomitant]
  3. SEROQUEL [Suspect]
     Indication: MANIA
     Route: 048

REACTIONS (3)
  - DRUG DOSE OMISSION [None]
  - WITHDRAWAL SYNDROME [None]
  - INSOMNIA [None]
